FAERS Safety Report 5973865-X (Version None)
Quarter: 2008Q4

REPORT INFORMATION
  Report Type: 
  Country: None (occurrence: None)
  Receive Date: 20081201
  Receipt Date: 20080916
  Transmission Date: 20090506
  Serious: Yes (Other)
  Sender: FDA-Public Use
  Company Number: US-AMGEN-KDL307703

PATIENT
  Sex: Female
  Weight: 59.5 kg

DRUGS (14)
  1. ENBREL [Suspect]
     Indication: RHEUMATOID ARTHRITIS
     Route: 058
     Dates: start: 20040401
  2. PREDNISONE TAB [Concomitant]
  3. AZATHIOPRINE [Concomitant]
     Route: 048
  4. DICLOFENAC SODIUM [Concomitant]
     Route: 048
  5. PROTONIX [Concomitant]
     Route: 048
  6. METOPROLOL TARTRATE [Concomitant]
  7. NITROFURANTOIN [Concomitant]
     Route: 048
  8. CALCIUM WITH VITAMIN D [Concomitant]
  9. CENTRUM SILVER [Concomitant]
     Route: 048
  10. FLOMAX [Concomitant]
     Route: 048
  11. ASPIRIN [Concomitant]
     Route: 048
  12. FOSAMAX [Concomitant]
     Route: 048
  13. GABAPENTIN [Concomitant]
     Route: 048
  14. ZOLOFT [Concomitant]

REACTIONS (9)
  - BACK PAIN [None]
  - BURSITIS [None]
  - BURSITIS INFECTIVE [None]
  - CYSTITIS [None]
  - INJECTION SITE PAIN [None]
  - NODULE [None]
  - POST PROCEDURAL SWELLING [None]
  - STAPHYLOCOCCAL INFECTION [None]
  - SYNOVITIS [None]
